FAERS Safety Report 12034598 (Version 1)
Quarter: 2016Q1

REPORT INFORMATION
  Report Type: Not Available
  Country: None (occurrence: US)
  Receive Date: 20160207
  Receipt Date: 20160207
  Transmission Date: 20160526
  Serious: No
  Sender: FDA-Public Use
  Company Number: US-AKORN-9028

PATIENT
  Age: 60 Year
  Sex: Female

DRUGS (1)
  1. TRIMETHOPRIM SULFATE + POLYMYXIN B SULFATE OPHTHALMIC SOLUTION [Suspect]
     Active Substance: POLYMYXIN B SULFATE\TRIMETHOPRIM SULFATE

REACTIONS (2)
  - Incorrect product storage [None]
  - Eyelid oedema [Unknown]
